FAERS Safety Report 17491521 (Version 1)
Quarter: 2020Q1

REPORT INFORMATION
  Report Type: Spontaneous
  Country: US (occurrence: US)
  Receive Date: 20200304
  Receipt Date: 20200304
  Transmission Date: 20200409
  Serious: No
  Sender: FDA-Public Use
  Company Number: US-ALK-ABELLO A/S-2020AA000454

PATIENT

DRUGS (1)
  1. ODACTRA [Suspect]
     Active Substance: DERMATOPHAGOIDES FARINAE\DERMATOPHAGOIDES PTERONYSSINUS
     Indication: MITE ALLERGY
     Dosage: 1 TAB
     Dates: start: 20200128

REACTIONS (20)
  - Chest discomfort [Recovered/Resolved]
  - Throat tightness [Recovered/Resolved]
  - Throat tightness [Recovered/Resolved]
  - Product preparation issue [Unknown]
  - Throat tightness [Recovered/Resolved]
  - Dysphagia [Recovered/Resolved]
  - Throat tightness [Recovered/Resolved]
  - Dysphonia [Recovered/Resolved]
  - Pain [Recovered/Resolved]
  - Hypersensitivity [Recovered/Resolved]
  - Off label use [Unknown]
  - Incorrect dose administered [Unknown]
  - Pharyngeal swelling [Recovered/Resolved]
  - Oropharyngeal pain [Recovered/Resolved]
  - Chest pain [Recovered/Resolved]
  - Chest pain [Recovered/Resolved]
  - Chest pain [Recovered/Resolved]
  - Incorrect route of product administration [Unknown]
  - Oropharyngeal pain [Recovered/Resolved]
  - Dysphagia [Recovered/Resolved]

NARRATIVE: CASE EVENT DATE: 20200128
